FAERS Safety Report 8059337-X (Version None)
Quarter: 2012Q1

REPORT INFORMATION
  Report Type: 
  Country: None (occurrence: None)
  Receive Date: 20120120
  Receipt Date: 20120120
  Transmission Date: 20120608
  Serious: Yes (Death, Life-Threatening, Hospitalization, Other)
  Sender: FDA-Public Use
  Company Number: None

PATIENT
  Sex: Female
  Weight: 41.73 kg

DRUGS (1)
  1. PRADAXA [Suspect]
     Indication: ATRIAL FIBRILLATION
     Dosage: 150MG
     Route: 048
     Dates: start: 20110701, end: 20111121

REACTIONS (11)
  - LACERATION [None]
  - AGITATION [None]
  - BLOOD PRESSURE DECREASED [None]
  - UNRESPONSIVE TO STIMULI [None]
  - CEREBRAL HAEMORRHAGE [None]
  - BRAIN CONTUSION [None]
  - ROAD TRAFFIC ACCIDENT [None]
  - INFUSION SITE REACTION [None]
  - EXCORIATION [None]
  - CERVICAL VERTEBRAL FRACTURE [None]
  - PULMONARY OEDEMA [None]
